FAERS Safety Report 9753589 (Version 2)
Quarter: 2014Q1

REPORT INFORMATION
  Report Type: Spontaneous
  Country: GB (occurrence: GB)
  Receive Date: 20131213
  Receipt Date: 20140217
  Transmission Date: 20141002
  Serious: Yes (Other)
  Sender: FDA-Public Use
  Company Number: PHHY2013GB144012

PATIENT
  Age: 62 Year
  Sex: Male
  Weight: 85 kg

DRUGS (1)
  1. TEGRETOL [Suspect]
     Indication: EPILEPSY
     Dosage: 200MG (MORNING AND NIGHT WITH FOOD)
     Route: 048

REACTIONS (6)
  - Gastrointestinal carcinoma [Unknown]
  - Prostate cancer [Unknown]
  - Blood urine present [Unknown]
  - Haematospermia [Unknown]
  - Osteoporosis [Recovering/Resolving]
  - Oedema [Unknown]
